FAERS Safety Report 11690291 (Version 1)
Quarter: 2015Q4

REPORT INFORMATION
  Report Type: Report from Study
  Country: AU (occurrence: AU)
  Receive Date: 20151102
  Receipt Date: 20151102
  Transmission Date: 20160304
  Serious: Yes (Hospitalization)
  Sender: FDA-Public Use
  Company Number: AU-ABBVIE-15P-008-1489746-00

PATIENT
  Sex: Female

DRUGS (1)
  1. DUODOPA [Suspect]
     Active Substance: CARBIDOPA\LEVODOPA
     Indication: PARKINSON^S DISEASE
     Dosage: 16 HOUR THERAPY
     Route: 050
     Dates: start: 2008

REACTIONS (15)
  - Gastrointestinal inflammation [Unknown]
  - Rectal ulcer [Unknown]
  - Rectal discharge [Unknown]
  - Colitis [Unknown]
  - Gastrointestinal disorder [Unknown]
  - Faecal incontinence [Unknown]
  - Oedema mucosal [Unknown]
  - Gastrointestinal wall thickening [Unknown]
  - Proctitis [Unknown]
  - Large intestinal ulcer [Unknown]
  - Rectal haemorrhage [Unknown]
  - Gastrointestinal mucosal disorder [Unknown]
  - Frequent bowel movements [Unknown]
  - Gastrointestinal haemorrhage [Unknown]
  - Urinary incontinence [Unknown]
